FAERS Safety Report 14312469 (Version 2)
Quarter: 2017Q4

REPORT INFORMATION
  Report Type: Spontaneous
  Country: US (occurrence: US)
  Receive Date: 20171221
  Receipt Date: 20171227
  Transmission Date: 20180321
  Serious: No
  Sender: FDA-Public Use
  Company Number: US-PFIZER INC-2017538021

PATIENT
  Sex: Female

DRUGS (2)
  1. REVATIO [Interacting]
     Active Substance: SILDENAFIL CITRATE
     Dosage: 1 DF, DAILY
  2. REVATIO [Suspect]
     Active Substance: SILDENAFIL CITRATE
     Dosage: 1 DF, 3X/DAY

REACTIONS (2)
  - Drug interaction [Unknown]
  - Product use issue [Unknown]
